FAERS Safety Report 5097252-4 (Version None)
Quarter: 2006Q3

REPORT INFORMATION
  Report Type: 
  Country: None (occurrence: None)
  Receive Date: 20060901
  Receipt Date: 20060823
  Transmission Date: 20061208
  Serious: Yes (Hospitalization)
  Sender: FDA-Public Use
  Company Number: 2006-146721-NL

PATIENT
  Age: 51 Year
  Sex: Female

DRUGS (5)
  1. DEXAMETHASONE TAB [Suspect]
     Indication: CHEMOTHERAPY
     Dosage: 8 MG INTRAVENOUS (NOS)
     Route: 042
     Dates: start: 20050721, end: 20050831
  2. DEXAMETHASONE TAB [Suspect]
     Indication: PREMEDICATION
     Dosage: 8 MG INTRAVENOUS (NOS)
     Route: 042
     Dates: start: 20050721, end: 20050831
  3. PACLITAXEL [Concomitant]
  4. CARBOPLATIN [Concomitant]
  5. CISPLATIN [Concomitant]

REACTIONS (3)
  - RASH MACULAR [None]
  - SWOLLEN TONGUE [None]
  - TACHYCARDIA [None]
